FAERS Safety Report 4824943-X (Version None)
Quarter: 2005Q4

REPORT INFORMATION
  Report Type: 
  Country: None (occurrence: None)
  Receive Date: 20051110
  Receipt Date: 20051003
  Transmission Date: 20060501
  Serious: Yes (Death)
  Sender: FDA-Public Use
  Company Number: GR-MERCK-0510GRC00003

PATIENT
  Age: 28 Year
  Sex: Male

DRUGS (14)
  1. CANCIDAS [Suspect]
     Indication: PHAEHYPHOMYCOSIS
     Route: 051
  2. VALGANCICLOVIR HYDROCHLORIDE [Concomitant]
     Indication: CYTOMEGALOVIRUS INFECTION
     Route: 065
  3. VALGANCICLOVIR HYDROCHLORIDE [Concomitant]
     Route: 065
  4. VINCRISTINE SULFATE [Concomitant]
     Indication: HISTIOCYTOSIS HAEMATOPHAGIC
     Route: 065
  5. CORTICOSTEROIDS (UNSPECIFIED) [Concomitant]
     Indication: HISTIOCYTOSIS HAEMATOPHAGIC
     Route: 065
  6. AMPHOTERICIN B AND CHOLESTEROL AND DISTEAROYLPHOSPHATIDYLGLYCEROL AND [Concomitant]
     Indication: PHAEHYPHOMYCOSIS
     Route: 065
  7. GANCICLOVIR [Concomitant]
     Route: 065
  8. MEROPENEM [Concomitant]
     Route: 065
  9. AZTREONAM [Concomitant]
     Route: 065
  10. VANCOMYCIN [Concomitant]
     Indication: ENTEROCOCCAL INFECTION
     Route: 065
  11. CYCLOSPORINE [Concomitant]
     Indication: RENAL TRANSPLANT
     Route: 065
  12. METHYLPREDNISOLONE [Concomitant]
     Indication: RENAL TRANSPLANT
     Route: 065
  13. BASILIXIMAB [Concomitant]
     Indication: RENAL TRANSPLANT
     Route: 065
  14. MYCOPHENOLATE MOFETIL [Concomitant]
     Indication: RENAL TRANSPLANT
     Route: 065

REACTIONS (1)
  - INTESTINAL HAEMORRHAGE [None]
